FAERS Safety Report 7421623-1 (Version None)
Quarter: 2011Q2

REPORT INFORMATION
  Report Type: 
  Country: None (occurrence: None)
  Receive Date: 20110408
  Receipt Date: 20110329
  Transmission Date: 20111010
  Serious: Yes (Hospitalization)
  Sender: FDA-Public Use
  Company Number: AX257-10-0642

PATIENT
  Age: 76 Year
  Sex: Female
  Weight: 75.7 kg

DRUGS (1)
  1. ABRAXANE [Suspect]
     Indication: SQUAMOUS CELL CARCINOMA OF THE CERVIX
     Dosage: 125 MG/M2
     Dates: start: 20100819

REACTIONS (7)
  - PNEUMONIA [None]
  - URINARY BLADDER HAEMORRHAGE [None]
  - DEHYDRATION [None]
  - ACTIVITIES OF DAILY LIVING IMPAIRED [None]
  - FATIGUE [None]
  - VAGINAL HAEMORRHAGE [None]
  - CYSTITIS [None]
